FAERS Safety Report 19217547 (Version 1)
Quarter: 2021Q2

REPORT INFORMATION
  Report Type: Spontaneous
  Country: US (occurrence: US)
  Receive Date: 20210505
  Receipt Date: 20210505
  Transmission Date: 20210717
  Serious: No
  Sender: FDA-Public Use
  Company Number: US-CADILA HEALTHCARE LIMITED-US-ZYDUS-056382

PATIENT

DRUGS (1)
  1. PAROXETINE 40 MILLIGRAM TABLET [Suspect]
     Active Substance: PAROXETINE
     Indication: DEPRESSION
     Dosage: 40 MILLIGRAM, QD
     Route: 065
     Dates: start: 20200601, end: 20200831

REACTIONS (3)
  - Drug ineffective [Recovered/Resolved]
  - Depression [Recovered/Resolved]
  - Malaise [Recovered/Resolved]

NARRATIVE: CASE EVENT DATE: 2020
